FAERS Safety Report 9417691 (Version 4)
Quarter: 2013Q4

REPORT INFORMATION
  Report Type: Spontaneous
  Country: US (occurrence: US)
  Receive Date: 20130724
  Receipt Date: 20131118
  Transmission Date: 20140711
  Serious: Yes (Hospitalization, Other)
  Sender: FDA-Public Use
  Company Number: US-AMGEN-USASP2013050803

PATIENT
  Age: 77 Year
  Sex: Female

DRUGS (5)
  1. PROLIA [Suspect]
     Indication: OSTEOPOROSIS POSTMENOPAUSAL
     Dosage: UNK
     Route: 065
     Dates: start: 2012
  2. ENBREL [Suspect]
     Indication: PSORIATIC ARTHROPATHY
     Dosage: 50 MG, QWK
     Route: 065
     Dates: start: 20030101, end: 20130920
  3. CALCIUM WITH VITAMIN D             /00944201/ [Concomitant]
  4. BABY ASPIRIN [Concomitant]
  5. TRAMADOL [Concomitant]
     Indication: PAIN

REACTIONS (13)
  - Multiple fractures [Unknown]
  - Walking aid user [Unknown]
  - Transient ischaemic attack [Unknown]
  - Lower limb fracture [Recovered/Resolved]
  - Upper limb fracture [Unknown]
  - Fall [Unknown]
  - Pneumonia [Not Recovered/Not Resolved]
  - Calcinosis [Unknown]
  - Psoriatic arthropathy [Recovered/Resolved]
  - Periarthritis [Not Recovered/Not Resolved]
  - Infection [Recovered/Resolved]
  - Psoriasis [Recovered/Resolved]
  - Urinary tract infection [Recovered/Resolved]
